FAERS Safety Report 13623992 (Version 1)
Quarter: 2017Q2

REPORT INFORMATION
  Report Type: Spontaneous
  Country: US (occurrence: US)
  Receive Date: 20170608
  Receipt Date: 20170608
  Transmission Date: 20170830
  Serious: No
  Sender: FDA-Public Use
  Company Number: US-ASTRAZENECA-2017SE57840

PATIENT
  Sex: Male
  Weight: 79.4 kg

DRUGS (2)
  1. SYMBICORT [Suspect]
     Active Substance: BUDESONIDE\FORMOTEROL FUMARATE DIHYDRATE
     Indication: ASTHMA
     Dosage: 160/4.5MCG  1 PUFF 2 PUFFS BID
     Route: 055
  2. SYMBICORT [Suspect]
     Active Substance: BUDESONIDE\FORMOTEROL FUMARATE DIHYDRATE
     Indication: ASTHMA
     Dosage: 160/4.5MCG  2 PUFFS 2 PUFFS BID
     Route: 055

REACTIONS (6)
  - Wheezing [Recovered/Resolved]
  - Product taste abnormal [Unknown]
  - Drug ineffective [Unknown]
  - Sinus disorder [Recovered/Resolved]
  - Pharyngitis [Recovered/Resolved]
  - Intentional product misuse [Unknown]
